FAERS Safety Report 17362283 (Version 3)
Quarter: 2020Q2

REPORT INFORMATION
  Report Type: Spontaneous
  Country: US (occurrence: US)
  Receive Date: 20200203
  Receipt Date: 20200407
  Transmission Date: 20200713
  Serious: Yes (Other)
  Sender: FDA-Public Use
  Company Number: US-GILEAD-2020-0449366

PATIENT
  Sex: Female

DRUGS (2)
  1. VIREAD [Suspect]
     Active Substance: TENOFOVIR DISOPROXIL FUMARATE
     Indication: HIV INFECTION
     Route: 048
  2. TRUVADA [Suspect]
     Active Substance: EMTRICITABINE\TENOFOVIR DISOPROXIL FUMARATE
     Indication: HIV INFECTION
     Dosage: UNK
     Route: 048
     Dates: start: 2007, end: 2019

REACTIONS (9)
  - Bone density decreased [Unknown]
  - Emotional distress [Unknown]
  - Pain [Unknown]
  - Fracture [Unknown]
  - Anxiety [Unknown]
  - Osteopenia [Unknown]
  - Anhedonia [Unknown]
  - Tooth loss [Unknown]
  - Economic problem [Unknown]

NARRATIVE: CASE EVENT DATE: 2019
